FAERS Safety Report 5088280-3 (Version None)
Quarter: 2006Q3

REPORT INFORMATION
  Report Type: 
  Country: None (occurrence: None)
  Receive Date: 20060727
  Receipt Date: 20060613
  Transmission Date: 20061208
  Serious: Yes (Other)
  Sender: FDA-Public Use
  Company Number: 2006076507

PATIENT
  Age: 62 Year
  Sex: Female
  Weight: 32.659 kg

DRUGS (11)
  1. LYRICA [Suspect]
     Indication: PAIN
     Dosage: 150 MG (75 MG,2 IN 1 D)
     Route: 065
     Dates: start: 20060524
  2. LANOXIN [Concomitant]
  3. COREG [Concomitant]
  4. MAGESIUM OXIDE (MAGESIUM OXIDE) [Concomitant]
  5. SPIRONOLACTONE [Concomitant]
  6. LASIX [Concomitant]
  7. PLAVIX [Concomitant]
  8. ARAVA [Concomitant]
  9. ACEON [Concomitant]
  10. LIPITOR [Concomitant]
  11. VICODIN [Concomitant]

REACTIONS (5)
  - EUPHORIC MOOD [None]
  - PAIN [None]
  - SLEEP DISORDER [None]
  - SOMNOLENCE [None]
  - THINKING ABNORMAL [None]
